FAERS Safety Report 5456067-5 (Version None)
Quarter: 2007Q3

REPORT INFORMATION
  Report Type: 
  Country: None (occurrence: None)
  Receive Date: 20070918
  Receipt Date: 20070228
  Transmission Date: 20080115
  Serious: Yes (Other)
  Sender: FDA-Public Use
  Company Number: US-ASTRAZENECA-2006UW23781

PATIENT
  Sex: Female
  Weight: 77.3 kg

DRUGS (1)
  1. SEROQUEL [Suspect]
     Indication: DIZZINESS
     Route: 048
     Dates: start: 20011120, end: 20040624

REACTIONS (1)
  - PANCREATITIS [None]
